FAERS Safety Report 17600043 (Version 1)
Quarter: 2020Q1

REPORT INFORMATION
  Report Type: Spontaneous
  Country: JP (occurrence: JP)
  Receive Date: 20200330
  Receipt Date: 20200330
  Transmission Date: 20200409
  Serious: Yes (Other)
  Sender: FDA-Public Use
  Company Number: JP-NOVOPROD-720218

PATIENT
  Age: 39 Year
  Sex: Female
  Weight: 65.8 kg

DRUGS (3)
  1. NIFEDIPINE CR SANWA [Concomitant]
     Indication: HYPERTENSION
     Dosage: 20 MG
     Route: 065
  2. LEVEMIR [Suspect]
     Active Substance: INSULIN DETEMIR
     Indication: TYPE 2 DIABETES MELLITUS
     Dosage: 16 IU, QD
     Route: 058
  3. INSULIN LISPRO [Suspect]
     Active Substance: INSULIN LISPRO
     Indication: TYPE 2 DIABETES MELLITUS
     Dosage: 17 IU, QD (10-3-4)
     Route: 058

REACTIONS (3)
  - Maternal exposure during pregnancy [Recovered/Resolved]
  - Premature delivery [Unknown]
  - Foetal growth restriction [Unknown]
